FAERS Safety Report 5706025-8 (Version None)
Quarter: 2008Q2

REPORT INFORMATION
  Report Type: 
  Country: None (occurrence: None)
  Receive Date: 20080415
  Receipt Date: 20080402
  Transmission Date: 20081010
  Serious: Yes (Other)
  Sender: FDA-Public Use
  Company Number: PHNU2008DE01452

PATIENT
  Sex: Male

DRUGS (6)
  1. SEBIVO [Suspect]
     Indication: HEPATITIS B
     Dosage: 600 MG/D
     Route: 048
     Dates: start: 20080101
  2. RECORMON /SWE/ [Concomitant]
     Indication: NEPHROGENIC ANAEMIA
     Dosage: 1000 IU, TID
     Dates: end: 20080402
  3. RECORMON /SWE/ [Concomitant]
     Dosage: 2000 IU, TID
     Dates: start: 20080402
  4. ACE INHIBITOR NOS [Concomitant]
  5. METOPROLOL [Concomitant]
  6. ALLOPURINOL [Concomitant]

REACTIONS (1)
  - HAEMOGLOBIN DECREASED [None]
